FAERS Safety Report 11255829 (Version 4)
Quarter: 2015Q3

REPORT INFORMATION
  Report Type: Spontaneous
  Country: SA (occurrence: SA)
  Receive Date: 20150709
  Receipt Date: 20150914
  Transmission Date: 20151125
  Serious: Yes (Death, Hospitalization, Other)
  Sender: FDA-Public Use
  Company Number: SA-ASTRAZENECA-2015SE64653

PATIENT
  Age: 27 Year
  Sex: Female

DRUGS (7)
  1. ACETAMINOPHEN. [Concomitant]
     Active Substance: ACETAMINOPHEN
  2. CAPRELSA [Suspect]
     Active Substance: VANDETANIB
     Indication: THYROID CANCER
     Route: 048
     Dates: start: 20150418
  3. CAPRELSA [Suspect]
     Active Substance: VANDETANIB
     Indication: THYROID CANCER
     Route: 048
  4. KETOPROFEN. [Suspect]
     Active Substance: KETOPROFEN
     Route: 065
     Dates: start: 20150515, end: 20150612
  5. NSAIDS [Concomitant]
     Active Substance: UNSPECIFIED INGREDIENT
  6. COVERSYL [Concomitant]
     Active Substance: PERINDOPRIL
  7. ACE INHIBITORS [Concomitant]
     Active Substance: UNSPECIFIED INGREDIENT

REACTIONS (13)
  - Gastrointestinal infection [Unknown]
  - Dehydration [Unknown]
  - Death [Fatal]
  - Hypertension [Unknown]
  - Fatigue [Unknown]
  - Renal impairment [Unknown]
  - Dyspnoea [Unknown]
  - Malaise [Unknown]
  - Diarrhoea [Unknown]
  - Immunodeficiency [Unknown]
  - Urinary tract infection [Recovered/Resolved]
  - Hypoalbuminaemia [Unknown]
  - Gastritis [Unknown]

NARRATIVE: CASE EVENT DATE: 20150612
